FAERS Safety Report 5796349-0 (Version None)
Quarter: 2008Q2

REPORT INFORMATION
  Report Type: 
  Country: None (occurrence: None)
  Receive Date: 20080630
  Receipt Date: 20080630
  Transmission Date: 20081010
  Serious: Yes (Hospitalization)
  Sender: FDA-Public Use
  Company Number: None

PATIENT
  Age: 56 Year
  Weight: 90.7194 kg

DRUGS (2)
  1. DIGATEX ASPRESCRIBED STORE [Suspect]
     Indication: CARDIAC DISORDER
     Dosage: 0.25 QD PO
     Route: 048
  2. LANOXIN [Suspect]
     Indication: CARDIAC DISORDER
     Dosage: 0.25 QD PO
     Route: 048

REACTIONS (3)
  - BLADDER DISORDER [None]
  - CARDIAC DISORDER [None]
  - RENAL DISORDER [None]
